FAERS Safety Report 16156046 (Version 1)
Quarter: 2019Q2

REPORT INFORMATION
  Report Type: Spontaneous
  Country: FR (occurrence: FR)
  Receive Date: 20190404
  Receipt Date: 20190404
  Transmission Date: 20190711
  Serious: Yes (Death, Hospitalization)
  Sender: FDA-Public Use
  Company Number: FR-ROCHE-2293166

PATIENT
  Age: 71 Year
  Sex: Male

DRUGS (9)
  1. IDELALISIB [Concomitant]
     Active Substance: IDELALISIB
     Dosage: 150 MG, BID
     Route: 065
  2. IMIPENEM [Concomitant]
     Active Substance: IMIPENEM
     Route: 065
  3. DEXAMETHASONE. [Concomitant]
     Active Substance: DEXAMETHASONE
     Indication: HYPERVISCOSITY SYNDROME
     Route: 065
  4. CYCLOPHOSPHAMIDE. [Concomitant]
     Active Substance: CYCLOPHOSPHAMIDE
     Indication: HYPERVISCOSITY SYNDROME
     Route: 065
  5. CYCLOPHOSPHAMIDE. [Concomitant]
     Active Substance: CYCLOPHOSPHAMIDE
     Indication: NEPHROPATHY
     Dosage: UNK
     Route: 065
  6. CIPROFLOXACINE [Suspect]
     Active Substance: CIPROFLOXACIN
     Indication: PSEUDOMONAS INFECTION
     Dosage: UNK
     Route: 065
  7. DEXAMETHASONE. [Concomitant]
     Active Substance: DEXAMETHASONE
     Indication: NEPHROPATHY
     Dosage: UNK
     Route: 065
  8. RITUXIMAB. [Suspect]
     Active Substance: RITUXIMAB
     Indication: WALDENSTROM^S MACROGLOBULINAEMIA
     Dosage: UNK
     Route: 065
  9. IDELALISIB [Concomitant]
     Active Substance: IDELALISIB
     Dosage: AFTER DERMOCORTICOID TREATMENT AT 100 MG TWICE A DAY
     Route: 065

REACTIONS (10)
  - Drug ineffective [Fatal]
  - Encephalopathy [Fatal]
  - Pseudomonas infection [Fatal]
  - Off label use [Fatal]
  - Septic shock [Fatal]
  - Oliguria [Fatal]
  - Mucocutaneous haemorrhage [Fatal]
  - Dysarthria [Fatal]
  - Product use in unapproved indication [Fatal]
  - Confusional state [Fatal]
